FAERS Safety Report 19569973 (Version 1)
Quarter: 2021Q3

REPORT INFORMATION
  Report Type: Spontaneous
  Country: DE (occurrence: DE)
  Receive Date: 20210716
  Receipt Date: 20210716
  Transmission Date: 20211014
  Serious: Yes (Other)
  Sender: FDA-Public Use
  Company Number: DE-PFIZER INC-2021825328

PATIENT

DRUGS (1)
  1. CYTOTEC [Suspect]
     Active Substance: MISOPROSTOL
     Indication: LABOUR INDUCTION
     Dosage: A QUARTER TABLET EVERY 4 HOURS. 2 DOSES IN TOTAL.
     Route: 064
     Dates: start: 20120510, end: 20120510

REACTIONS (3)
  - Foetal exposure during pregnancy [Unknown]
  - Foetal heart rate increased [Unknown]
  - Off label use [Unknown]

NARRATIVE: CASE EVENT DATE: 201205
